FAERS Safety Report 6826093-X (Version None)
Quarter: 2010Q3

REPORT INFORMATION
  Report Type: 
  Country: None (occurrence: None)
  Receive Date: 20100709
  Receipt Date: 20100628
  Transmission Date: 20110219
  Serious: Yes (Other)
  Sender: FDA-Public Use
  Company Number: SE-JNJFOC-20090904814

PATIENT
  Age: 24 Year
  Sex: Female

DRUGS (14)
  1. INFLIXIMAB [Suspect]
     Indication: COLITIS ULCERATIVE
     Dosage: GESTATIONAL EXPOSURE WAS DAY 195
     Route: 042
  2. INFLIXIMAB [Suspect]
     Route: 042
  3. INFLIXIMAB [Suspect]
     Route: 042
  4. MERCAPTOPURINE [Concomitant]
     Indication: COLITIS ULCERATIVE
  5. MERCAPTOPURINE [Concomitant]
  6. MESALAMINE [Concomitant]
     Indication: COLITIS ULCERATIVE
  7. PREDNISOLONE [Concomitant]
     Indication: COLITIS ULCERATIVE
  8. HYDROCORTISONE [Concomitant]
  9. NAPROXEN [Concomitant]
  10. ANTIBIOTICS [Concomitant]
  11. FERROUS GLYCINE SULFATE [Concomitant]
  12. NYSTATIN [Concomitant]
  13. PENICILLIN V [Concomitant]
  14. MOMETASONE FUROATE [Concomitant]

REACTIONS (3)
  - DRUG EXPOSURE DURING PREGNANCY [None]
  - PREMATURE LABOUR [None]
  - PREMATURE RUPTURE OF MEMBRANES [None]
